FAERS Safety Report 4452036-2 (Version None)
Quarter: 2004Q3

REPORT INFORMATION
  Report Type: 
  Country: None (occurrence: None)
  Receive Date: 20040813
  Receipt Date: 20040419
  Transmission Date: 20050211
  Serious: No
  Sender: FDA-Public Use
  Company Number: S04-USA-03522-01

PATIENT
  Age: 88 Year
  Sex: Female

DRUGS (3)
  1. NAMENDA [Suspect]
     Indication: DEMENTIA ALZHEIMER'S TYPE
     Dosage: 5 MG QD PO
     Route: 048
     Dates: start: 20040418, end: 20040418
  2. CRESTOR [Concomitant]
  3. ANTIHYPERTENSIVE [Concomitant]

REACTIONS (2)
  - HEAD DISCOMFORT [None]
  - HEADACHE [None]
